FAERS Safety Report 8595907 (Version 3)
Quarter: 2013Q3

REPORT INFORMATION
  Report Type: Spontaneous
  Country: US (occurrence: US)
  Receive Date: 20120605
  Receipt Date: 20130702
  Transmission Date: 20140515
  Serious: Yes (Hospitalization)
  Sender: FDA-Public Use
  Company Number: US-ASTRAZENECA-2012SE35901

PATIENT
  Age: 56 Year
  Sex: Male

DRUGS (23)
  1. NEXIUM [Suspect]
     Indication: GASTROOESOPHAGEAL REFLUX DISEASE
     Route: 048
  2. NEXIUM [Suspect]
     Indication: GASTROOESOPHAGEAL REFLUX DISEASE
     Route: 048
     Dates: start: 2009
  3. NEXIUM [Suspect]
     Indication: GASTROOESOPHAGEAL REFLUX DISEASE
     Route: 048
     Dates: start: 20100525
  4. NEXIUM [Suspect]
     Indication: GASTROOESOPHAGEAL REFLUX DISEASE
     Dosage: ONCE DAILY
     Route: 048
     Dates: start: 20100326, end: 20130409
  5. NEXIUM [Suspect]
     Indication: GASTROOESOPHAGEAL REFLUX DISEASE
     Route: 048
     Dates: start: 20100326
  6. TRAMADOL HCL [Concomitant]
     Dates: start: 200912
  7. HYDROCO/APAP [Concomitant]
     Dosage: 5 TO 500 MG
     Dates: start: 201001
  8. HYDROCO/APAP [Concomitant]
     Dosage: 7.5 TO 500 MG
     Dates: start: 20100224
  9. CYCLOBENZAPR [Concomitant]
     Dates: start: 201001
  10. IBUPROFEN [Concomitant]
     Dates: start: 20100224
  11. TUMS [Concomitant]
     Indication: GASTROOESOPHAGEAL REFLUX DISEASE
     Dates: start: 1996
  12. PROTONIX [Concomitant]
     Dates: start: 20080406
  13. SIMVASTATIN [Concomitant]
     Route: 048
     Dates: start: 20100702
  14. LISINOPRIL [Concomitant]
     Route: 048
     Dates: start: 20110125
  15. AMLODIPINE [Concomitant]
     Route: 048
     Dates: start: 20110624
  16. NITROSTAT [Concomitant]
  17. ZETIA [Concomitant]
     Route: 048
     Dates: start: 20111204
  18. NAPROXEN [Concomitant]
     Route: 048
     Dates: start: 20120220
  19. ZOLPIDEM [Concomitant]
     Route: 048
     Dates: start: 20120924
  20. PEG 3350 [Concomitant]
     Dates: start: 20121102
  21. TRICOR [Concomitant]
  22. PENTAZOCINE [Concomitant]
  23. NALOXONE [Concomitant]

REACTIONS (10)
  - Hypertension [Unknown]
  - Osteoporosis [Unknown]
  - Bone density decreased [Unknown]
  - Arthritis [Unknown]
  - Bone loss [Unknown]
  - Bone pain [Unknown]
  - Multiple fractures [Unknown]
  - Osteogenesis imperfecta [Unknown]
  - Osteoarthritis [Unknown]
  - Depression [Unknown]
